FAERS Safety Report 15777750 (Version 1)
Quarter: 2018Q4

REPORT INFORMATION
  Report Type: Spontaneous
  Country: US (occurrence: US)
  Receive Date: 20181231
  Receipt Date: 20181231
  Transmission Date: 20190205
  Serious: Yes (Hospitalization)
  Sender: FDA-Public Use
  Company Number: None

PATIENT
  Age: 58 Year
  Sex: Male

DRUGS (11)
  1. VORICONAZOLE. [Concomitant]
     Active Substance: VORICONAZOLE
  2. FOLIC ACID. [Concomitant]
     Active Substance: FOLIC ACID
  3. GABAPENTIN. [Concomitant]
     Active Substance: GABAPENTIN
  4. FLUCONAZOLE. [Concomitant]
     Active Substance: FLUCONAZOLE
  5. PROMACTA [Suspect]
     Active Substance: ELTROMBOPAG OLAMINE
     Indication: HAEMATOLOGY TEST
     Route: 048
     Dates: start: 20181205
  6. PREDNISONE. [Concomitant]
     Active Substance: PREDNISONE
  7. MEPRON [Concomitant]
     Active Substance: ATOVAQUONE
  8. CRESTOR [Concomitant]
     Active Substance: ROSUVASTATIN CALCIUM
  9. VALTREX [Concomitant]
     Active Substance: VALACYCLOVIR HYDROCHLORIDE
  10. VITAMIN B6 [Concomitant]
     Active Substance: PYRIDOXINE HYDROCHLORIDE
  11. ACTIGALL [Concomitant]
     Active Substance: URSODIOL

REACTIONS (2)
  - Laboratory test [None]
  - Hospitalisation [None]

NARRATIVE: CASE EVENT DATE: 20181228
